FAERS Safety Report 17661750 (Version 2)
Quarter: 2020Q2

REPORT INFORMATION
  Report Type: Report from Study
  Country: GB (occurrence: GB)
  Receive Date: 20200413
  Receipt Date: 20200423
  Transmission Date: 20200713
  Serious: Yes (Death, Hospitalization)
  Sender: FDA-Public Use
  Company Number: GB-ROCHE-2577696

PATIENT

DRUGS (6)
  1. ATEZOLIZUMAB. [Suspect]
     Active Substance: ATEZOLIZUMAB
     Indication: MESOTHELIOMA
     Dosage: ON DAYS 1 EVERY 21-DAYS.?LAST ADMINISTRATION : 12/MAR/2020
     Route: 042
     Dates: start: 20200312, end: 20200312
  2. BEVACIZUMAB. [Suspect]
     Active Substance: BEVACIZUMAB
     Indication: MESOTHELIOMA
     Dosage: ON DAYS 1 EVERY 21-DAYS.?LAST ADMINISTRATION CYCLE: 12/MAR/2020
     Route: 042
     Dates: start: 20200312
  3. FUROSEMIDE. [Concomitant]
     Active Substance: FUROSEMIDE
     Route: 048
     Dates: start: 20200205, end: 20200411
  4. CODEINE [Concomitant]
     Active Substance: CODEINE
     Indication: PAIN
     Dosage: 15-30 MG
     Route: 048
     Dates: start: 20200323, end: 20200411
  5. OMEPRAZOLE. [Concomitant]
     Active Substance: OMEPRAZOLE
     Dosage: GASTRIC PROTECTION
     Route: 048
     Dates: start: 20200205, end: 20200411
  6. CO-AMOXICLAV [AMOXICILLIN;CLAVULANATE POTASSIUM] [Concomitant]
     Active Substance: AMOXICILLIN\CLAVULANATE POTASSIUM
     Indication: LOWER RESPIRATORY TRACT INFECTION
     Route: 048
     Dates: start: 20200329, end: 20200405

REACTIONS (2)
  - Superior vena cava occlusion [Recovered/Resolved with Sequelae]
  - Dyspnoea [Fatal]

NARRATIVE: CASE EVENT DATE: 20200327
